FAERS Safety Report 12047373 (Version 8)
Quarter: 2016Q3

REPORT INFORMATION
  Report Type: Spontaneous
  Country: GB (occurrence: GB)
  Receive Date: 20160209
  Receipt Date: 20160701
  Transmission Date: 20161109
  Serious: Yes (Other)
  Sender: FDA-Public Use
  Company Number: GB-ROCHE-1647424

PATIENT
  Sex: Female
  Weight: 41 kg

DRUGS (2)
  1. HERCEPTIN [Suspect]
     Active Substance: TRASTUZUMAB
     Indication: PRODUCT USED FOR UNKNOWN INDICATION
     Route: 058
  2. DESOGESTREL [Concomitant]
     Active Substance: DESOGESTREL
     Route: 065

REACTIONS (29)
  - Dysgeusia [Unknown]
  - Joint range of motion decreased [Unknown]
  - Pruritus [Unknown]
  - Wound infection [Unknown]
  - Asthenia [Unknown]
  - Lymphoedema [Unknown]
  - Diarrhoea [Unknown]
  - Body temperature fluctuation [Unknown]
  - Night sweats [Not Recovered/Not Resolved]
  - Chills [Unknown]
  - Local reaction [Unknown]
  - Onychoclasis [Unknown]
  - Feeling cold [Unknown]
  - Fatigue [Not Recovered/Not Resolved]
  - Arthralgia [Not Recovered/Not Resolved]
  - Alopecia [Unknown]
  - Decreased appetite [Unknown]
  - Pain [Not Recovered/Not Resolved]
  - Heart rate increased [Unknown]
  - Weight decreased [Unknown]
  - Nausea [Unknown]
  - Urinary tract infection [Unknown]
  - Insomnia [Not Recovered/Not Resolved]
  - Injection site discolouration [Unknown]
  - Arthralgia [Unknown]
  - Neuropathy peripheral [Unknown]
  - Rash macular [Unknown]
  - Hypotension [Unknown]
  - Lethargy [Unknown]
